FAERS Safety Report 15589631 (Version 2)
Quarter: 2020Q3

REPORT INFORMATION
  Report Type: Report from Study
  Country: BR (occurrence: BR)
  Receive Date: 20181106
  Receipt Date: 20181130
  Transmission Date: 20201105
  Serious: Yes (Hospitalization)
  Sender: FDA-Public Use
  Company Number: BR-ROCHE-2151621

PATIENT
  Age: 29 Year
  Sex: Male
  Weight: 75 kg

DRUGS (4)
  1. EMICIZUMAB. [Suspect]
     Active Substance: EMICIZUMAB
     Dosage: DATE OF THE MOST RECENT DOSE (1.5 MG/KG) PRIOR TO THE AE AND SERIOUS ADVERSE EVENT ONSET: 28/JUN/201
     Route: 058
  2. EMICIZUMAB. [Suspect]
     Active Substance: EMICIZUMAB
     Indication: FACTOR VIII DEFICIENCY
     Dosage: DATE OF THE MOST RECENT DOSE (1.5 MG/KG) PRIOR TO THE AE AND SERIOUS ADVERSE EVENT ONSET: 28/JUN/201
     Route: 058
     Dates: start: 20180504
  3. RIFOCIN [Concomitant]
     Active Substance: RIFAMYCIN
     Route: 061
     Dates: start: 20180426
  4. RFVIIA [Concomitant]
     Active Substance: COAGULATION FACTOR VIIA HUMAN
     Route: 058
     Dates: start: 20180702, end: 20180702

REACTIONS (6)
  - Haemosiderosis [Recovered/Resolved]
  - Infected skin ulcer [Recovered/Resolved]
  - Wound necrosis [Recovered/Resolved]
  - Wound dehiscence [Recovered/Resolved]
  - Ulcer haemorrhage [Recovered/Resolved]
  - Synovitis [Recovered/Resolved]

NARRATIVE: CASE EVENT DATE: 20180704
